FAERS Safety Report 7399385-6 (Version None)
Quarter: 2011Q1

REPORT INFORMATION
  Report Type: 
  Country: None (occurrence: None)
  Receive Date: 20110329
  Receipt Date: 20110315
  Transmission Date: 20110831
  Serious: Yes (Other)
  Sender: FDA-Public Use
  Company Number: 2011SP011849

PATIENT

DRUGS (1)
  1. TEMODAL [Suspect]
     Indication: ACUTE MYELOID LEUKAEMIA

REACTIONS (1)
  - PSEUDOMONAL SEPSIS [None]
